FAERS Safety Report 7959097-4 (Version None)
Quarter: 2011Q4

REPORT INFORMATION
  Report Type: 
  Country: None (occurrence: None)
  Receive Date: 20111206
  Receipt Date: 20111206
  Transmission Date: 20120403
  Serious: Yes (Other)
  Sender: FDA-Public Use
  Company Number: None

PATIENT
  Age: 53 Year
  Sex: Female
  Weight: 75.296 kg

DRUGS (1)
  1. RECLAST [Suspect]
     Dosage: 5 MG
     Route: 041

REACTIONS (6)
  - HYPOACUSIS [None]
  - ACUTE PHASE REACTION [None]
  - PAIN [None]
  - OPHTHALMOPLEGIA [None]
  - HERPES ZOSTER [None]
  - HEARING IMPAIRED [None]
